FAERS Safety Report 12717817 (Version 1)
Quarter: 2016Q3

REPORT INFORMATION
  Report Type: Spontaneous
  Country: IT (occurrence: IT)
  Receive Date: 20160906
  Receipt Date: 20160906
  Transmission Date: 20161109
  Serious: Yes (Other)
  Sender: FDA-Public Use
  Company Number: IT-PFIZER INC-2016414103

PATIENT
  Age: 22 Year
  Sex: Male

DRUGS (9)
  1. BEVACIZUMAB [Suspect]
     Active Substance: BEVACIZUMAB
     Indication: HODGKIN^S DISEASE
     Dosage: EVERY 3 WEEKS FOR UP TO 16 CYCLES
     Route: 042
     Dates: start: 201302
  2. DOXORUBICIN HCL [Suspect]
     Active Substance: DOXORUBICIN HYDROCHLORIDE
     Indication: HODGKIN^S DISEASE
     Dosage: UNK
  3. BLEOMYCIN [Suspect]
     Active Substance: BLEOMYCIN SULFATE
     Indication: HODGKIN^S DISEASE
     Dosage: UNK
  4. VINCRISTINE SULFATE. [Suspect]
     Active Substance: VINCRISTINE SULFATE
     Indication: HODGKIN^S DISEASE
     Dosage: UNK
  5. DACARBAZINE. [Suspect]
     Active Substance: DACARBAZINE
     Indication: HODGKIN^S DISEASE
     Dosage: UNK
  6. PREDNISONE. [Suspect]
     Active Substance: PREDNISONE
     Indication: HODGKIN^S DISEASE
     Dosage: UNK
  7. VINBLASTINE [Suspect]
     Active Substance: VINBLASTINE
     Indication: HODGKIN^S DISEASE
     Dosage: UNK
  8. CYCLOPHOSPHAMIDE. [Suspect]
     Active Substance: CYCLOPHOSPHAMIDE
     Indication: HODGKIN^S DISEASE
     Dosage: UNK
  9. ETOPOSIDE. [Suspect]
     Active Substance: ETOPOSIDE
     Indication: HODGKIN^S DISEASE
     Dosage: UNK

REACTIONS (1)
  - Acute motor-sensory axonal neuropathy [Recovering/Resolving]
